FAERS Safety Report 4493958-6 (Version None)
Quarter: 2004Q4

REPORT INFORMATION
  Report Type: 
  Country: None (occurrence: None)
  Receive Date: 20041104
  Receipt Date: 20041104
  Transmission Date: 20050328
  Serious: Yes (Hospitalization)
  Sender: FDA-Public Use
  Company Number: None

PATIENT
  Age: 73 Year
  Sex: Female
  Weight: 60 kg

DRUGS (1)
  1. TOREMIFENE    60MG [Suspect]
     Indication: BREAST CANCER
     Dosage: 60MG  QDAY   P.O.
     Route: 048
     Dates: start: 20000918, end: 20040910

REACTIONS (4)
  - ENDOMETRIAL CANCER [None]
  - PELVIC PAIN [None]
  - POSTMENOPAUSAL HAEMORRHAGE [None]
  - TENDERNESS [None]
